FAERS Safety Report 12617608 (Version 3)
Quarter: 2016Q3

REPORT INFORMATION
  Report Type: Spontaneous
  Country: US (occurrence: US)
  Receive Date: 20160803
  Receipt Date: 20160830
  Transmission Date: 20161109
  Serious: No
  Sender: FDA-Public Use
  Company Number: US-PFIZER INC-2016338550

PATIENT
  Age: 83 Year
  Sex: Female

DRUGS (2)
  1. XELJANZ [Suspect]
     Active Substance: TOFACITINIB CITRATE
     Dosage: 11 MG, UNK
  2. XELJANZ [Suspect]
     Active Substance: TOFACITINIB CITRATE
     Dosage: 5 MG, UNK

REACTIONS (3)
  - Fatigue [Unknown]
  - Urinary tract infection [Unknown]
  - Infection [Unknown]
